FAERS Safety Report 23701759 (Version 1)
Quarter: 2024Q2

REPORT INFORMATION
  Report Type: Other
  Country: US (occurrence: US)
  Receive Date: 20240403
  Receipt Date: 20240403
  Transmission Date: 20240715
  Serious: Yes (Life-Threatening, Hospitalization, Other)
  Sender: FDA-Public Use
  Company Number: US-Eywa Pharma Inc.-2155180

PATIENT
  Age: 52 Year
  Sex: Male

DRUGS (2)
  1. BACLOFEN [Suspect]
     Active Substance: BACLOFEN
     Indication: Product used for unknown indication
     Route: 065
  2. ESCITALOPRAM [Concomitant]
     Active Substance: ESCITALOPRAM OXALATE
     Route: 065

REACTIONS (11)
  - Unresponsive to stimuli [Recovered/Resolved]
  - Overdose [Unknown]
  - Eye movement disorder [Recovered/Resolved]
  - Areflexia [Recovered/Resolved]
  - Seizure [Recovered/Resolved]
  - Corneal reflex decreased [Recovered/Resolved]
  - Pupillary reflex impaired [Recovered/Resolved]
  - Mental status changes [Recovered/Resolved]
  - Acute kidney injury [Recovered/Resolved]
  - Brain injury [Recovered/Resolved]
  - Hypoxic-ischaemic encephalopathy [Recovered/Resolved]
